FAERS Safety Report 6111036-7 (Version None)
Quarter: 2009Q1

REPORT INFORMATION
  Report Type: 
  Country: None (occurrence: None)
  Receive Date: 20090311
  Receipt Date: 20080320
  Transmission Date: 20090719
  Serious: No
  Sender: FDA-Public Use
  Company Number: US-KINGPHARMUSA00001-K200800345

PATIENT
  Sex: Female
  Weight: 55.782 kg

DRUGS (5)
  1. ALTACE [Suspect]
     Indication: HYPERTENSION
     Dosage: 5 MG, QD
     Route: 048
     Dates: start: 20080201
  2. ALTACE [Suspect]
     Dosage: 10 MG, QD EVERY MORNING
     Dates: start: 20080101, end: 20080101
  3. ALTACE [Suspect]
     Dosage: 10 MG, BID
     Route: 048
     Dates: start: 20080101, end: 20080301
  4. ATIVAN [Concomitant]
     Indication: AGITATION
     Dosage: .5 MG, PRN
     Route: 048
  5. VITAMINS NOS [Concomitant]
     Dosage: UNK, QD
     Route: 048

REACTIONS (2)
  - DRUG INEFFECTIVE [None]
  - HEADACHE [None]
